FAERS Safety Report 8431700-4 (Version None)
Quarter: 2012Q2

REPORT INFORMATION
  Report Type: 
  Country: None (occurrence: None)
  Receive Date: 20120607
  Receipt Date: 20120607
  Transmission Date: 20120825
  Serious: No
  Sender: FDA-Public Use
  Company Number: None

PATIENT
  Age: 23 Year
  Sex: Male

DRUGS (3)
  1. QUETIAPINE [Suspect]
     Indication: AUTISM SPECTRUM DISORDER
     Dosage: 50 MG TID P.O.
     Route: 048
     Dates: start: 20120401, end: 20120501
  2. QUETIAPINE [Suspect]
     Indication: RETT'S DISORDER
     Dosage: 50 MG TID P.O.
     Route: 048
     Dates: start: 20120401, end: 20120501
  3. QUETIAPINE [Suspect]
     Indication: ASPERGER'S DISORDER
     Dosage: 50 MG TID P.O.
     Route: 048
     Dates: start: 20120401, end: 20120501

REACTIONS (2)
  - PRODUCT SUBSTITUTION ISSUE [None]
  - IRRITABILITY [None]
